FAERS Safety Report 9917405 (Version 3)
Quarter: 2014Q2

REPORT INFORMATION
  Report Type: Report from Study
  Country: JP (occurrence: JP)
  Receive Date: 20140221
  Receipt Date: 20140630
  Transmission Date: 20141212
  Serious: Yes (Hospitalization, Other)
  Sender: FDA-Public Use
  Company Number: JP-PFIZER INC-2014045208

PATIENT
  Age: 70 Year
  Sex: Female
  Weight: 58 kg

DRUGS (6)
  1. CRIZOTINIB [Suspect]
     Indication: NON-SMALL CELL LUNG CANCER
     Dosage: 250 MG, 2X/DAY
     Route: 048
     Dates: start: 20120919, end: 20120927
  2. CRIZOTINIB [Suspect]
     Dosage: 200 MG, 2X/DAY
     Route: 048
     Dates: start: 20121002, end: 20121012
  3. LOXONIN [Suspect]
     Dosage: 60 MG, 3X/DAY
     Route: 048
     Dates: end: 20120930
  4. MUCOSTA [Concomitant]
     Dosage: 100 MG, 3X/DAY
     Route: 048
  5. LENDORMIN [Concomitant]
     Dosage: 0.125 MG, 1X/DAY
     Route: 048
     Dates: start: 20120920, end: 20120926
  6. MAGMITT [Concomitant]
     Dosage: 500 MG, 3X/DAY
     Route: 048
     Dates: start: 20120923, end: 20120929

REACTIONS (2)
  - Renal impairment [Recovered/Resolved]
  - Hepatotoxicity [Recovered/Resolved]
